FAERS Safety Report 9365061 (Version 2)
Quarter: 2013Q4

REPORT INFORMATION
  Report Type: Spontaneous
  Country: US (occurrence: US)
  Receive Date: 20130624
  Receipt Date: 20131126
  Transmission Date: 20140711
  Serious: Yes (Hospitalization)
  Sender: FDA-Public Use
  Company Number: US-B.I. PHARMACEUTICALS,INC./RIDGEFIELD-2013-BI-17419BP

PATIENT
  Sex: Male
  Weight: 74.39 kg

DRUGS (15)
  1. PRADAXA [Suspect]
     Indication: ATRIAL FIBRILLATION
     Dosage: 300 MG
     Dates: start: 20110427, end: 20110810
  2. PRADAXA [Suspect]
     Indication: ANTICOAGULANT THERAPY
  3. DIGOXIN [Concomitant]
     Dosage: 0.125 MG
  4. FOLATE [Concomitant]
     Dosage: 1 G
  5. VERAPAMIL ER [Concomitant]
  6. MAG-OX [Concomitant]
     Dosage: 400 MG
  7. ZOCOR [Concomitant]
     Dosage: 20 MG
  8. FLOMAX [Concomitant]
  9. AVODART [Concomitant]
     Dosage: 0.5 MG
  10. FOSAMAX [Concomitant]
  11. FIBERCON [Concomitant]
  12. VITAMIN D [Concomitant]
  13. CITRACAL [Concomitant]
  14. LEVBID [Concomitant]
     Dosage: 0.375 MG
  15. B 12 [Concomitant]

REACTIONS (3)
  - Gastrointestinal haemorrhage [Unknown]
  - Haemorrhagic anaemia [Unknown]
  - Coagulopathy [Unknown]
